FAERS Safety Report 7023248-9 (Version None)
Quarter: 2010Q3

REPORT INFORMATION
  Report Type: 
  Country: None (occurrence: None)
  Receive Date: 20100916
  Receipt Date: 20100601
  Transmission Date: 20110219
  Serious: No
  Sender: FDA-Public Use
  Company Number: DKLU1062668

PATIENT
  Age: 41 Year
  Sex: Female

DRUGS (4)
  1. SABRIL [Suspect]
     Indication: EPILEPSY
     Dosage: 1000 MG MILLIGRAM(S), 2 IN 1 D, ORAL
     Route: 048
     Dates: start: 20100527
  2. BANZEL (RUFINAMIDE) [Concomitant]
  3. KEPPRA [Concomitant]
  4. FELBATOL [Concomitant]

REACTIONS (1)
  - MUSCLE TWITCHING [None]
